FAERS Safety Report 9914505 (Version 1)
Quarter: 2014Q1

REPORT INFORMATION
  Report Type: Spontaneous
  Country: US (occurrence: None)
  Receive Date: 20140219
  Receipt Date: 20140219
  Transmission Date: 20141002
  Serious: Yes (Life-Threatening, Other)
  Sender: FDA-Public Use
  Company Number: None

PATIENT
  Age: 60 Year
  Sex: Male
  Weight: 104.33 kg

DRUGS (2)
  1. ANDROGEL [Suspect]
     Indication: BLOOD TESTOSTERONE DECREASED
     Dosage: 50MG/5GM?ONCE DAILY?APPLIED TO A SURFACE, USUALLY THE SKIN
     Dates: start: 20050101, end: 20130308
  2. ANDROGEL [Suspect]
     Indication: ASTHENIA
     Dosage: 50MG/5GM?ONCE DAILY?APPLIED TO A SURFACE, USUALLY THE SKIN
     Dates: start: 20050101, end: 20130308

REACTIONS (4)
  - Pulmonary embolism [None]
  - Memory impairment [None]
  - Cerebrovascular accident [None]
  - Meningitis [None]
